FAERS Safety Report 25421987 (Version 1)
Quarter: 2025Q2

REPORT INFORMATION
  Report Type: Spontaneous
  Country: US (occurrence: US)
  Receive Date: 20250611
  Receipt Date: 20250611
  Transmission Date: 20250717
  Serious: No
  Sender: RECKITT BENCKISER
  Company Number: US-PROD-AS2-212756134-20-25-USA-RB-0003571

PATIENT
  Age: 82 Year
  Sex: Male
  Weight: 72.575 kg

DRUGS (8)
  1. MUCINEX DM [Suspect]
     Active Substance: DEXTROMETHORPHAN HYDROBROMIDE\GUAIFENESIN
     Indication: Cough
     Dosage: 2 TABLETS BID
     Route: 048
     Dates: start: 20250226, end: 20250226
  2. MUCINEX DM [Suspect]
     Active Substance: DEXTROMETHORPHAN HYDROBROMIDE\GUAIFENESIN
     Indication: Nasopharyngitis
  3. MUCINEX DM [Suspect]
     Active Substance: DEXTROMETHORPHAN HYDROBROMIDE\GUAIFENESIN
     Indication: Oropharyngeal pain
  4. DELSYM COUGH PLUS SOOTHING ACTION [Suspect]
     Active Substance: DEXTROMETHORPHAN HYDROBROMIDE\MENTHOL
     Indication: Product used for unknown indication
     Route: 048
     Dates: start: 20250226, end: 20250226
  5. PLAVIX [Concomitant]
     Active Substance: CLOPIDOGREL BISULFATE
     Indication: Product used for unknown indication
     Route: 065
  6. VITAMIN D [Concomitant]
     Active Substance: VITAMIN D NOS
     Indication: Product used for unknown indication
     Route: 065
  7. MENAQUINONE 6 [Concomitant]
     Active Substance: MENAQUINONE 6
     Indication: Product used for unknown indication
     Route: 065
  8. QUERCETIN [Concomitant]
     Active Substance: QUERCETIN
     Indication: Product used for unknown indication
     Route: 065

REACTIONS (5)
  - Dizziness [Recovered/Resolved]
  - Coordination abnormal [Recovered/Resolved]
  - Feeling drunk [Recovered/Resolved]
  - Overdose [Recovered/Resolved]
  - Pseudohallucination [Recovered/Resolved]

NARRATIVE: CASE EVENT DATE: 20250226
